FAERS Safety Report 5192466-7 (Version None)
Quarter: 2006Q4

REPORT INFORMATION
  Report Type: 
  Country: None (occurrence: None)
  Receive Date: 20061220
  Receipt Date: 20061208
  Transmission Date: 20070319
  Serious: Yes (Death, Other)
  Sender: FDA-Public Use
  Company Number: T200601429

PATIENT
  Age: 62 Year
  Sex: Male

DRUGS (5)
  1. METHADOSE [Suspect]
     Dosage: 40 MG, 1/2 TO 1 TABLET BID, ORAL
     Route: 048
     Dates: start: 20061117
  2. PROVIGIL [Concomitant]
  3. POTASSIUM (POTASSIUM) [Concomitant]
  4. PRILOSEC /00661201/ (OMEPRAZOLE) [Concomitant]
  5. FLOMAX /01280302/ (TAMSULOSIN HYDROCHLORIDE) [Concomitant]

REACTIONS (2)
  - HYPOAESTHESIA [None]
  - MYOCARDIAL INFARCTION [None]
